FAERS Safety Report 6845604-1 (Version None)
Quarter: 2010Q3

REPORT INFORMATION
  Report Type: 
  Country: None (occurrence: None)
  Receive Date: 20100715
  Receipt Date: 20070827
  Transmission Date: 20110219
  Serious: No
  Sender: FDA-Public Use
  Company Number: US-PFIZER INC-2007072855

PATIENT
  Sex: Female
  Weight: 59.1 kg

DRUGS (7)
  1. CHANTIX [Suspect]
     Indication: SMOKING CESSATION THERAPY
     Dates: start: 20070808
  2. FOSAMAX [Concomitant]
  3. FISH OIL [Concomitant]
  4. DAILY VITAMINS [Concomitant]
  5. VITAMIN E [Concomitant]
  6. CALCIUM WITH VITAMIN D [Concomitant]
  7. VITAMIN C [Concomitant]

REACTIONS (3)
  - HEADACHE [None]
  - INSOMNIA [None]
  - NIGHTMARE [None]
